FAERS Safety Report 15548174 (Version 2)
Quarter: 2018Q4

REPORT INFORMATION
  Report Type: Spontaneous
  Country: US (occurrence: US)
  Receive Date: 20181024
  Receipt Date: 20181122
  Transmission Date: 20190205
  Serious: No
  Sender: FDA-Public Use
  Company Number: PHHY2018US131054

PATIENT
  Sex: Female

DRUGS (1)
  1. SYSTANE GELDROPS [Suspect]
     Active Substance: POLYETHYLENE GLYCOL 400\PROPYLENE GLYCOL
     Indication: PRODUCT USED FOR UNKNOWN INDICATION
     Route: 047
     Dates: start: 20181015

REACTIONS (6)
  - Ocular hyperaemia [Not Recovered/Not Resolved]
  - Product contamination [Unknown]
  - Eye inflammation [Not Recovered/Not Resolved]
  - Chalazion [Not Recovered/Not Resolved]
  - Eye infection [Not Recovered/Not Resolved]
  - Corneal lesion [Not Recovered/Not Resolved]

NARRATIVE: CASE EVENT DATE: 20181015
